FAERS Safety Report 25654803 (Version 2)
Quarter: 2025Q3

REPORT INFORMATION
  Report Type: Spontaneous
  Country: US (occurrence: US)
  Receive Date: 20250807
  Receipt Date: 20250811
  Transmission Date: 20251020
  Serious: Yes (Other)
  Sender: UCB
  Company Number: US-UCBSA-2025047908

PATIENT
  Sex: Female
  Weight: 86.18 kg

DRUGS (1)
  1. BIMZELX [Suspect]
     Active Substance: BIMEKIZUMAB-BKZX
     Indication: Psoriatic arthropathy
     Dosage: 320 MILLIGRAM, EV 4 WEEKS (THEN EVERY 8 WEEKS THEREAFTER)
     Route: 058

REACTIONS (5)
  - Psoriatic arthropathy [Unknown]
  - Injection site pain [Unknown]
  - Injection site bruising [Unknown]
  - Injection site haemorrhage [Unknown]
  - Headache [Recovered/Resolved]
